FAERS Safety Report 9029307 (Version 4)
Quarter: 2014Q1

REPORT INFORMATION
  Report Type: Spontaneous
  Country: US (occurrence: US)
  Receive Date: 20130124
  Receipt Date: 20140122
  Transmission Date: 20141002
  Serious: Yes (Hospitalization, Other)
  Sender: FDA-Public Use
  Company Number: US-BAXTER-2013BAX002090

PATIENT
  Age: 48 Year
  Sex: Female

DRUGS (3)
  1. DIANEAL LOW CALCIUM (ULTRABAG) [Suspect]
     Indication: PERITONEAL DIALYSIS
     Route: 033
     Dates: start: 20100808
  2. DIANEAL LOW CALCIUM (ULTRABAG) [Suspect]
     Indication: PERITONEAL DIALYSIS
     Route: 033
     Dates: start: 2009
  3. DIANEAL LOW CALCIUM (ULTRABAG) [Suspect]
     Indication: PERITONEAL DIALYSIS
     Route: 033
     Dates: start: 201212

REACTIONS (9)
  - Intestinal haemorrhage [Recovered/Resolved]
  - Faeces hard [Unknown]
  - Ulcer [Unknown]
  - Constipation [Unknown]
  - Peritonitis bacterial [Recovered/Resolved]
  - Fluid retention [Recovered/Resolved]
  - Peritoneal dialysis complication [Recovered/Resolved]
  - Wrong drug administered [Recovered/Resolved]
  - Overdose [Recovered/Resolved]
